FAERS Safety Report 9738809 (Version 1)
Quarter: 2013Q4

REPORT INFORMATION
  Report Type: Report from Study
  Country: US (occurrence: US)
  Receive Date: 20131209
  Receipt Date: 20131209
  Transmission Date: 20140711
  Serious: Yes (Other)
  Sender: FDA-Public Use
  Company Number: US-ROCHE-1315442

PATIENT
  Sex: Male

DRUGS (4)
  1. LUCENTIS [Suspect]
     Indication: RETINAL DISORDER
     Dosage: FREQUENCY ABOUT AVERAGE 4 TO 5 WEEKS
     Route: 050
     Dates: start: 2010
  2. PANTOPRAZOLE [Concomitant]
     Indication: DYSPEPSIA
     Route: 048
  3. PROSTATE SR [Concomitant]
     Dosage: ONE TWICE A DAY
     Route: 065
  4. ASPIRIN [Concomitant]
     Route: 065

REACTIONS (3)
  - Cataract [Unknown]
  - Retinal operation [Unknown]
  - Visual impairment [Unknown]
